FAERS Safety Report 4752594-4 (Version None)
Quarter: 2005Q3

REPORT INFORMATION
  Report Type: 
  Country: None (occurrence: None)
  Receive Date: 20050824
  Receipt Date: 20050808
  Transmission Date: 20060218
  Serious: Yes (Other)
  Sender: FDA-Public Use
  Company Number: USA0508104866

PATIENT
  Age: 12 Year
  Sex: Male

DRUGS (1)
  1. HUMATROPE(SOMATROPIN) [Suspect]
     Dosage: 3.6 MG DAY
     Dates: start: 20050601, end: 20050728

REACTIONS (8)
  - BODY HEIGHT INCREASED [None]
  - CONVULSION [None]
  - INCORRECT DOSE ADMINISTERED [None]
  - INJECTION SITE ERYTHEMA [None]
  - INJECTION SITE RASH [None]
  - OVERDOSE [None]
  - PHARMACEUTICAL PRODUCT COMPLAINT [None]
  - SKIN STRIAE [None]
